FAERS Safety Report 10729714 (Version 6)
Quarter: 2015Q1

REPORT INFORMATION
  Report Type: Report from Study
  Country: US (occurrence: US)
  Receive Date: 20150122
  Receipt Date: 20150219
  Transmission Date: 20150721
  Serious: Yes (Hospitalization)
  Sender: FDA-Public Use
  Company Number: US-ABBVIE-15K-163-1334495-00

PATIENT
  Age: 52 Year
  Sex: Female

DRUGS (2)
  1. LOSARTAN [Concomitant]
     Active Substance: LOSARTAN
     Indication: HYPERTENSION
  2. HUMIRA [Suspect]
     Active Substance: ADALIMUMAB
     Indication: CROHN^S DISEASE
     Route: 065
     Dates: start: 20140114, end: 20150121

REACTIONS (16)
  - Dizziness [Recovered/Resolved]
  - Abdominal distension [Not Recovered/Not Resolved]
  - Peripheral swelling [Not Recovered/Not Resolved]
  - Joint injury [Unknown]
  - Night sweats [Unknown]
  - Diarrhoea [Not Recovered/Not Resolved]
  - Tinnitus [Not Recovered/Not Resolved]
  - Rash [Unknown]
  - Asthenia [Recovered/Resolved]
  - Arthralgia [Not Recovered/Not Resolved]
  - Dizziness [Unknown]
  - Hypertension [Recovering/Resolving]
  - Dyspnoea [Not Recovered/Not Resolved]
  - Headache [Recovered/Resolved]
  - Fall [Recovering/Resolving]
  - Fatigue [Unknown]

NARRATIVE: CASE EVENT DATE: 2014
